FAERS Safety Report 24525162 (Version 1)
Quarter: 2024Q4

REPORT INFORMATION
  Report Type: Spontaneous
  Country: US (occurrence: US)
  Receive Date: 20241019
  Receipt Date: 20241019
  Transmission Date: 20250114
  Serious: No
  Sender: AMGEN
  Company Number: US-AMGEN-USASP2024206082

PATIENT
  Age: 83 Year
  Sex: Female

DRUGS (2)
  1. REPATHA [Suspect]
     Active Substance: EVOLOCUMAB
     Indication: Blood cholesterol abnormal
     Dosage: 140 MILLIGRAM, Q2WK
     Route: 058
     Dates: end: 2024
  2. REPATHA [Suspect]
     Active Substance: EVOLOCUMAB
     Indication: Low density lipoprotein increased

REACTIONS (2)
  - Low density lipoprotein increased [Unknown]
  - Injection site reaction [Unknown]

NARRATIVE: CASE EVENT DATE: 20240101
